FAERS Safety Report 4784889-2 (Version None)
Quarter: 2005Q3

REPORT INFORMATION
  Report Type: 
  Country: None (occurrence: None)
  Receive Date: 20050929
  Receipt Date: 20050929
  Transmission Date: 20060218
  Serious: No
  Sender: FDA-Public Use
  Company Number: None

PATIENT
  Age: 45 Year
  Sex: Male
  Weight: 100 kg

DRUGS (1)
  1. TEQUIN [Suspect]
     Indication: MYRINGITIS
     Dosage: 400MG  PO  QD
     Route: 048
     Dates: start: 20050721, end: 20050728

REACTIONS (1)
  - BLOOD GLUCOSE INCREASED [None]
